APPROVED DRUG PRODUCT: FLURBIPROFEN SODIUM
Active Ingredient: FLURBIPROFEN SODIUM
Strength: 0.03%
Dosage Form/Route: SOLUTION/DROPS;OPHTHALMIC
Application: A074447 | Product #001
Applicant: BAUSCH AND LOMB INC
Approved: Jan 4, 1995 | RLD: No | RS: Yes | Type: RX